FAERS Safety Report 23683357 (Version 1)
Quarter: 2024Q1

REPORT INFORMATION
  Report Type: Report from Study
  Country: CA (occurrence: None)
  Receive Date: 20240328
  Receipt Date: 20240328
  Transmission Date: 20240410
  Serious: Yes (Other)
  Sender: FDA-Public Use
  Company Number: 2024A070713

PATIENT
  Age: 83 Year
  Sex: Male

DRUGS (7)
  1. FASENRA [Suspect]
     Active Substance: BENRALIZUMAB
     Indication: Asthma
     Route: 058
     Dates: start: 20211122
  2. VENTOLIN [Concomitant]
     Active Substance: ALBUTEROL SULFATE
     Dosage: 100 MCG AS NEEDED
  3. BREO ELLIPTA [Concomitant]
     Active Substance: FLUTICASONE FUROATE\VILANTEROL TRIFENATATE
     Dosage: 200MCG 1 INH ID
  4. SINGULAIR [Concomitant]
     Active Substance: MONTELUKAST SODIUM
     Dosage: 10MG ID
  5. SPIRIVA RESPIMAT [Concomitant]
     Active Substance: TIOTROPIUM BROMIDE
     Dosage: 18MCG ID
  6. PREDNISONE [Concomitant]
     Active Substance: PREDNISONE
     Dosage: 15MG ID
     Dates: start: 202106
  7. LEVAQUIN [Concomitant]
     Active Substance: LEVOFLOXACIN

REACTIONS (3)
  - Fall [Recovering/Resolving]
  - Rib fracture [Recovering/Resolving]
  - Craniocerebral injury [Recovering/Resolving]

NARRATIVE: CASE EVENT DATE: 20240310
